FAERS Safety Report 8368177-3 (Version None)
Quarter: 2012Q2

REPORT INFORMATION
  Report Type: 
  Country: None (occurrence: None)
  Receive Date: 20120517
  Receipt Date: 20120503
  Transmission Date: 20120825
  Serious: Yes (Other)
  Sender: FDA-Public Use
  Company Number: CHPA2012US010349

PATIENT
  Sex: Female

DRUGS (1)
  1. MYOFLEX ANALGESIC CREME [Suspect]
     Indication: ARTHRITIS
     Dosage: UNK, UNK
     Route: 061

REACTIONS (4)
  - LOWER LIMB FRACTURE [None]
  - INCORRECT DRUG ADMINISTRATION DURATION [None]
  - SPINAL FRACTURE [None]
  - ROAD TRAFFIC ACCIDENT [None]
